FAERS Safety Report 5375653-4 (Version None)
Quarter: 2007Q2

REPORT INFORMATION
  Report Type: 
  Country: None (occurrence: None)
  Receive Date: 20070629
  Receipt Date: 20070618
  Transmission Date: 20071010
  Serious: Yes (Other)
  Sender: FDA-Public Use
  Company Number: US-PFIZER INC-2007051822

PATIENT
  Sex: Female
  Weight: 64.545 kg

DRUGS (10)
  1. CHANTIX [Suspect]
     Indication: SMOKING CESSATION THERAPY
     Dosage: TEXT:EVERY DAY
  2. PREDNISONE TAB [Suspect]
     Indication: EMPHYSEMA
  3. ALBUTEROL [Concomitant]
     Dosage: FREQ:FOUR TO SIX HOURS
  4. ALBUTEROL [Concomitant]
     Dosage: FREQ:EVERY FOUR HOURS
  5. BUDESONIDE [Concomitant]
  6. PROZAC [Concomitant]
  7. LAMICTAL [Concomitant]
  8. DARVOCET [Concomitant]
     Dosage: FREQ:ONE EVERY FOUR HOURS
  9. CHLORPROMAZINE [Concomitant]
  10. NEXIUM [Concomitant]
     Indication: GASTROOESOPHAGEAL REFLUX DISEASE

REACTIONS (1)
  - HEADACHE [None]
